FAERS Safety Report 13734587 (Version 3)
Quarter: 2017Q3

REPORT INFORMATION
  Report Type: Report from Study
  Country: BR (occurrence: BR)
  Receive Date: 20170709
  Receipt Date: 20170921
  Transmission Date: 20171127
  Serious: Yes (Death, Hospitalization)
  Sender: FDA-Public Use
  Company Number: PHHY2017BR100032

PATIENT
  Sex: Female
  Weight: 49 kg

DRUGS (3)
  1. LOSARTAN. [Concomitant]
     Active Substance: LOSARTAN
     Indication: HYPERTENSION
     Dosage: 50 MG, THE DOSE OF TWO TABLETS(, QD)
     Route: 065
  2. EXJADE [Suspect]
     Active Substance: DEFERASIROX
     Indication: IRON OVERLOAD
     Dosage: 1000 MG, QD (500MG ON THE DOSE OF TWO TABLETS PER DAY)
     Route: 048
     Dates: start: 20160715
  3. PURAN [Concomitant]
     Active Substance: LEVOTHYROXINE SODIUM
     Indication: HYPOTHYROIDISM
     Dosage: 75 MG, QD (ON THE DOSE OF ONE TABLET PER DAY)
     Route: 065

REACTIONS (5)
  - Lung disorder [Fatal]
  - Septic shock [Fatal]
  - Myelodysplastic syndrome [Fatal]
  - Lung infection [Fatal]
  - Dyspnoea [Unknown]
